FAERS Safety Report 5792952-2 (Version None)
Quarter: 2008Q2

REPORT INFORMATION
  Report Type: 
  Country: None (occurrence: None)
  Receive Date: 20080627
  Receipt Date: 20080620
  Transmission Date: 20081010
  Serious: Yes (Hospitalization)
  Sender: FDA-Public Use
  Company Number: US-AMGEN-QUU272906

PATIENT
  Sex: Female

DRUGS (1)
  1. ENBREL [Suspect]
     Indication: DRUG USE FOR UNKNOWN INDICATION
     Route: 058
     Dates: start: 20041202

REACTIONS (14)
  - ANGIOEDEMA [None]
  - CYSTITIS [None]
  - GRAND MAL CONVULSION [None]
  - HIP ARTHROPLASTY [None]
  - HYPERTENSION [None]
  - KNEE ARTHROPLASTY [None]
  - LYMPHADENOPATHY [None]
  - MIGRAINE [None]
  - NAUSEA [None]
  - PHARYNGOLARYNGEAL PAIN [None]
  - POST PROCEDURAL COMPLICATION [None]
  - POSTOPERATIVE WOUND INFECTION [None]
  - PRODUCTIVE COUGH [None]
  - WHEEZING [None]
